FAERS Safety Report 12237783 (Version 1)
Quarter: 2016Q2

REPORT INFORMATION
  Report Type: Spontaneous
  Country: US (occurrence: None)
  Receive Date: 20160404
  Receipt Date: 20160404
  Transmission Date: 20160815
  Serious: No
  Sender: FDA-Public Use
  Company Number: None

PATIENT
  Age: 31 Year
  Sex: Female
  Weight: 74.84 kg

DRUGS (5)
  1. ELAVIL [Suspect]
     Active Substance: AMITRIPTYLINE HYDROCHLORIDE
     Indication: POST-TRAUMATIC STRESS DISORDER
     Dosage: 30 TABLET(S) AT BEDTIME TAKEN BY MOUTH
     Route: 048
     Dates: start: 20140916, end: 20150730
  2. ELAVIL [Suspect]
     Active Substance: AMITRIPTYLINE HYDROCHLORIDE
     Indication: ANXIETY
     Dosage: 30 TABLET(S) AT BEDTIME TAKEN BY MOUTH
     Route: 048
     Dates: start: 20140916, end: 20150730
  3. ALBUTEROL. [Concomitant]
     Active Substance: ALBUTEROL
  4. ELAVIL [Suspect]
     Active Substance: AMITRIPTYLINE HYDROCHLORIDE
     Indication: HYPOAESTHESIA
     Dosage: 30 TABLET(S) AT BEDTIME TAKEN BY MOUTH
     Route: 048
     Dates: start: 20140916, end: 20150730
  5. ZYRTEC [Concomitant]
     Active Substance: CETIRIZINE HYDROCHLORIDE

REACTIONS (10)
  - Post-traumatic stress disorder [None]
  - Palpitations [None]
  - Feeling abnormal [None]
  - Condition aggravated [None]
  - Chest pain [None]
  - Eczema [None]
  - Acne [None]
  - Psoriasis [None]
  - Coordination abnormal [None]
  - Anxiety [None]

NARRATIVE: CASE EVENT DATE: 20141115
